FAERS Safety Report 8017798-6 (Version None)
Quarter: 2012Q1

REPORT INFORMATION
  Report Type: 
  Country: None (occurrence: None)
  Receive Date: 20120103
  Receipt Date: 20111229
  Transmission Date: 20120608
  Serious: No
  Sender: FDA-Public Use
  Company Number: US-PFIZER INC-2011298760

PATIENT
  Sex: Female
  Weight: 74.8 kg

DRUGS (2)
  1. XANAX [Suspect]
     Indication: PANIC ATTACK
     Dosage: 2 MG, AS NEEDED
     Route: 048
     Dates: start: 20010101
  2. SYNTHROID [Concomitant]
     Indication: HYPERTHYROIDISM
     Dosage: UNK

REACTIONS (2)
  - DRUG INEFFECTIVE [None]
  - NAUSEA [None]
